FAERS Safety Report 14140303 (Version 1)
Quarter: 2017Q4

REPORT INFORMATION
  Report Type: Spontaneous
  Country: US (occurrence: US)
  Receive Date: 20171030
  Receipt Date: 20171030
  Transmission Date: 20180321
  Serious: Yes (Life-Threatening, Hospitalization, Other)
  Sender: FDA-Public Use
  Company Number: US-ALEMBIC PHARMACUETICALS LIMITED-2017SCAL000839

PATIENT

DRUGS (4)
  1. DILTIAZEM. [Suspect]
     Active Substance: DILTIAZEM
     Indication: ATRIAL TACHYCARDIA
     Dosage: 30 MG, UNK(80 TABLETS)
  2. METOPROLOL TARTRATE. [Suspect]
     Active Substance: METOPROLOL TARTRATE
     Indication: ATRIAL TACHYCARDIA
  3. METOPROLOL TARTRATE. [Suspect]
     Active Substance: METOPROLOL TARTRATE
     Indication: SYNCOPE
     Dosage: 25 TABLETS
  4. DILTIAZEM. [Suspect]
     Active Substance: DILTIAZEM
     Indication: SYNCOPE

REACTIONS (13)
  - Unresponsive to stimuli [Recovering/Resolving]
  - Overdose [Recovering/Resolving]
  - Respiratory rate decreased [Recovering/Resolving]
  - Cardiac arrest [Recovering/Resolving]
  - Heart rate decreased [Recovering/Resolving]
  - Pulse absent [Recovering/Resolving]
  - Peripheral ischaemia [Recovering/Resolving]
  - Suicide attempt [Recovering/Resolving]
  - Drug level above therapeutic [Unknown]
  - Coma scale abnormal [Recovering/Resolving]
  - Bradyarrhythmia [Recovering/Resolving]
  - Pulmonary oedema [Recovering/Resolving]
  - Hypotension [Recovering/Resolving]
